FAERS Safety Report 22125565 (Version 1)
Quarter: 2023Q1

REPORT INFORMATION
  Report Type: Spontaneous
  Country: US (occurrence: US)
  Receive Date: 20230322
  Receipt Date: 20230322
  Transmission Date: 20230417
  Serious: No
  Sender: FDA-Public Use
  Company Number: US-ALLERGAN-2302488US

PATIENT
  Sex: Female

DRUGS (6)
  1. BOTOX COSMETIC [Suspect]
     Active Substance: ONABOTULINUMTOXINA
     Indication: Skin wrinkling
     Dosage: 24 UNITS, SINGLE
     Dates: start: 20230105, end: 20230105
  2. BOTOX COSMETIC [Suspect]
     Active Substance: ONABOTULINUMTOXINA
     Indication: Skin wrinkling
     Dosage: 6 UNITS, SINGLE
     Dates: start: 20230105, end: 20230105
  3. BOTOX COSMETIC [Suspect]
     Active Substance: ONABOTULINUMTOXINA
     Indication: Skin wrinkling
     Dosage: 14 UNITS, SINGLE
     Dates: start: 20230105, end: 20230105
  4. BOTOX COSMETIC [Suspect]
     Active Substance: ONABOTULINUMTOXINA
     Dosage: 16 UNITS, SINGLE
     Dates: start: 20221110, end: 20221110
  5. BOTOX COSMETIC [Suspect]
     Active Substance: ONABOTULINUMTOXINA
     Dosage: 6 UNITS, SINGLE
     Dates: start: 20221110, end: 20221110
  6. BOTOX COSMETIC [Suspect]
     Active Substance: ONABOTULINUMTOXINA
     Dosage: 14 UNITS, SINGLE
     Dates: start: 20221110, end: 20221110

REACTIONS (2)
  - Product preparation error [Unknown]
  - Drug ineffective [Unknown]
